FAERS Safety Report 5443352-6 (Version None)
Quarter: 2007Q3

REPORT INFORMATION
  Report Type: 
  Country: None (occurrence: None)
  Receive Date: 20070905
  Receipt Date: 20070828
  Transmission Date: 20080115
  Serious: Yes (Other)
  Sender: FDA-Public Use
  Company Number: A0648769A

PATIENT
  Age: 32 Year
  Sex: Female
  Weight: 84.8 kg

DRUGS (4)
  1. ARIXTRA [Suspect]
     Indication: ANTITHROMBIN III DEFICIENCY
     Dosage: 2.5MG PER DAY
     Route: 058
     Dates: start: 20070315, end: 20070424
  2. ANTITHROMBIN [Concomitant]
     Route: 042
     Dates: start: 20070312, end: 20070312
  3. MULTI-VITAMINS [Concomitant]
     Indication: PREGNANCY
     Route: 048
  4. DICLECTIN [Concomitant]
     Indication: VOMITING
     Route: 048

REACTIONS (4)
  - DRUG EXPOSURE DURING PREGNANCY [None]
  - INDUCED LABOUR [None]
  - NORMAL NEWBORN [None]
  - PREMATURE RUPTURE OF MEMBRANES [None]
